FAERS Safety Report 20508871 (Version 4)
Quarter: 2022Q4

REPORT INFORMATION
  Report Type: Spontaneous
  Country: AU (occurrence: AU)
  Receive Date: 20220223
  Receipt Date: 20221221
  Transmission Date: 20230112
  Serious: Yes (Death, Hospitalization, Other)
  Sender: FDA-Public Use
  Company Number: AU-PFIZER INC-202200276755

PATIENT
  Age: 52 Year
  Sex: Female

DRUGS (33)
  1. DIAZEPAM [Suspect]
     Active Substance: DIAZEPAM
     Dosage: UNK
  2. KETAMINE HYDROCHLORIDE [Suspect]
     Active Substance: KETAMINE HYDROCHLORIDE
     Dosage: UNK
     Dates: start: 20190326
  3. PREGABALIN [Suspect]
     Active Substance: PREGABALIN
     Indication: Pain
     Dosage: 150 MG, 2X/DAY
  4. PREGABALIN [Suspect]
     Active Substance: PREGABALIN
     Indication: Drug dependence
  5. PREGABALIN [Suspect]
     Active Substance: PREGABALIN
     Indication: Psychosocial support
  6. METHADONE [Suspect]
     Active Substance: METHADONE HYDROCHLORIDE
     Indication: Drug dependence
     Dosage: 40 MG, DAILY (DURING THIS ADMISSION)
  7. METHADONE [Suspect]
     Active Substance: METHADONE HYDROCHLORIDE
     Dosage: 10 MG, 4X/DAY
  8. METHADONE [Suspect]
     Active Substance: METHADONE HYDROCHLORIDE
     Dosage: 20 MG, DAILY
  9. METHADONE [Suspect]
     Active Substance: METHADONE HYDROCHLORIDE
     Dosage: 10 MG, 2X/DAY (DURING DISCHARGE REDUCED)
  10. METHADONE [Suspect]
     Active Substance: METHADONE HYDROCHLORIDE
     Dosage: DURING INPATIENT ADMISSION DOSES WERE HALVED
     Route: 065
  11. VALPROIC ACID [Suspect]
     Active Substance: VALPROIC ACID
     Indication: Pain
     Dosage: 500 MG, 2X/DAY
  12. VALPROIC ACID [Suspect]
     Active Substance: VALPROIC ACID
     Indication: Drug dependence
     Dosage: 500 MG, 3X/DAY
  13. VALPROIC ACID [Suspect]
     Active Substance: VALPROIC ACID
     Indication: Psychosocial support
  14. CLONAZEPAM [Suspect]
     Active Substance: CLONAZEPAM
     Indication: Pain
     Dosage: UNK, AS NEEDED (CLONAZEPAM 0.5MG TABLET TWICE DAILY, PLUS CLONAZEPAM 0.5MG TABLET HALF TO 1 TABLET)
  15. CLONAZEPAM [Suspect]
     Active Substance: CLONAZEPAM
     Indication: Drug dependence
     Dosage: 0.5 MG, 4X/DAY
  16. CLONAZEPAM [Suspect]
     Active Substance: CLONAZEPAM
     Indication: Psychosocial support
     Dosage: 2 MG, DAILY
  17. CLONAZEPAM [Suspect]
     Active Substance: CLONAZEPAM
     Dosage: 1 MG, DAILY
  18. CLONAZEPAM [Suspect]
     Active Substance: CLONAZEPAM
     Dosage: 0.5 MG, 2X/DAY (DURING DISCHARGE  )
  19. CLONAZEPAM [Suspect]
     Active Substance: CLONAZEPAM
     Dosage: CLONAZEPAM DOSES WERE HALVED
     Route: 065
  20. CLONAZEPAM [Suspect]
     Active Substance: CLONAZEPAM
     Dosage: UNK
     Route: 065
  21. TEMAZEPAM [Suspect]
     Active Substance: TEMAZEPAM
     Indication: Pain
     Dosage: 10 MG, 2X/DAY
  22. TEMAZEPAM [Suspect]
     Active Substance: TEMAZEPAM
     Indication: Drug dependence
  23. TEMAZEPAM [Suspect]
     Active Substance: TEMAZEPAM
     Indication: Psychosocial support
  24. DULOXETINE [Suspect]
     Active Substance: DULOXETINE
     Indication: Pain
     Dosage: 150 MG, DAILY (60MG CAPSULE TWICE DAILY, PLUS DULOXETINE 30MG CAPSULE ONCE DAILY)
  25. DULOXETINE [Suspect]
     Active Substance: DULOXETINE
     Indication: Drug dependence
     Dosage: 120 MG, 1X/DAY (30 MG, FOUR CAPSULES IN THE MORNING)
  26. DULOXETINE [Suspect]
     Active Substance: DULOXETINE
     Indication: Psychosocial support
     Dosage: 60 MG, 2X/DAY
  27. BUPRENORPHINE [Suspect]
     Active Substance: BUPRENORPHINE
     Indication: Drug dependence
     Dosage: UNK, AS NEEDED ( ONE TO TWO TAKEN FOUR TIMES DAILY WHEN)
  28. BUPRENORPHINE [Suspect]
     Active Substance: BUPRENORPHINE
     Dosage: 0.2 MG, 3X/DAY
  29. BUPRENORPHINE [Suspect]
     Active Substance: BUPRENORPHINE
     Dosage: UNK, AS NEEDED (ONE OR TWO TAKEN EVERY FOUR HOURS WHEN)
  30. SUBOXONE [Suspect]
     Active Substance: BUPRENORPHINE HYDROCHLORIDE\NALOXONE HYDROCHLORIDE
     Indication: Pain
     Dosage: 32 MG, DAILY
     Dates: start: 2007, end: 20190418
  31. SUBOXONE [Suspect]
     Active Substance: BUPRENORPHINE HYDROCHLORIDE\NALOXONE HYDROCHLORIDE
     Indication: Drug dependence
  32. SUBOXONE [Suspect]
     Active Substance: BUPRENORPHINE HYDROCHLORIDE\NALOXONE HYDROCHLORIDE
     Indication: Psychosocial support
  33. OXYCODONE [Suspect]
     Active Substance: OXYCODONE
     Dosage: UNK

REACTIONS (7)
  - Toxicity to various agents [Fatal]
  - Prescribed overdose [Fatal]
  - Overdose [Unknown]
  - Road traffic accident [Unknown]
  - Femur fracture [Unknown]
  - Depressed level of consciousness [Unknown]
  - Arthralgia [Unknown]

NARRATIVE: CASE EVENT DATE: 20180915
